FAERS Safety Report 9363372 (Version 2)
Quarter: 2013Q3

REPORT INFORMATION
  Report Type: Report from Study
  Country: US (occurrence: US)
  Receive Date: 20130624
  Receipt Date: 20130703
  Transmission Date: 20140515
  Serious: Yes (Hospitalization)
  Sender: FDA-Public Use
  Company Number: US-CELGENEUS-163-21880-13062555

PATIENT
  Age: 60 Year
  Sex: Male

DRUGS (13)
  1. REVLIMID [Suspect]
     Indication: PLASMA CELL MYELOMA
     Dosage: 10 MILLIGRAM
     Route: 048
     Dates: start: 20110711
  2. REVLIMID [Suspect]
     Dosage: 10 MILLIGRAM
     Route: 048
     Dates: start: 20111102, end: 20130613
  3. VELCADE [Concomitant]
     Indication: PLASMA CELL MYELOMA
     Route: 065
     Dates: start: 20110711
  4. DEXAMETHASONE [Concomitant]
     Indication: PLASMA CELL MYELOMA
     Route: 065
     Dates: start: 20110711
  5. DILAUDID [Concomitant]
     Indication: PAIN MANAGEMENT
     Route: 065
     Dates: start: 20130614
  6. FLUID [Concomitant]
     Indication: PAIN MANAGEMENT
     Dosage: 125 CC/HR
     Route: 041
     Dates: start: 20130614
  7. ASA [Concomitant]
     Indication: PRODUCT USED FOR UNKNOWN INDICATION
     Dosage: 81 MILLIGRAM
     Route: 048
  8. ACYCLOVIR [Concomitant]
     Indication: PRODUCT USED FOR UNKNOWN INDICATION
     Dosage: 800 MILLIGRAM
     Route: 048
  9. VITAMIN D3 [Concomitant]
     Indication: PRODUCT USED FOR UNKNOWN INDICATION
     Dosage: 1000 IU (INTERNATIONAL UNIT)
     Route: 048
  10. ZOFRAN [Concomitant]
     Indication: BILE DUCT STONE
     Route: 065
     Dates: start: 20130614
  11. ZOFRAN [Concomitant]
     Indication: NAUSEA
  12. TRAMADOL [Concomitant]
     Indication: PAIN MANAGEMENT
     Route: 065
  13. HEPARIN [Concomitant]
     Indication: PRODUCT USED FOR UNKNOWN INDICATION
     Route: 058

REACTIONS (1)
  - Bile duct stone [Recovered/Resolved]
